FAERS Safety Report 5553983-0 (Version None)
Quarter: 2007Q4

REPORT INFORMATION
  Report Type: 
  Country: None (occurrence: None)
  Receive Date: 20071213
  Receipt Date: 20071128
  Transmission Date: 20080405
  Serious: Yes (Disabling)
  Sender: FDA-Public Use
  Company Number: DE-ELI_LILLY_AND_COMPANY-DE200710003114

PATIENT
  Sex: Female
  Weight: 51 kg

DRUGS (5)
  1. FORTEO [Suspect]
     Indication: OSTEOPOROSIS
     Dosage: UNK, DAILY (1/D)
     Route: 058
     Dates: start: 20061022, end: 20070901
  2. CALCILAC [Concomitant]
     Dosage: UNK, AS NEEDED
  3. VITAMIN D [Concomitant]
  4. VOLTAREN                           /00372301/ [Concomitant]
     Dosage: UNK, AS NEEDED
  5. ARCOXIA [Concomitant]
     Dosage: 90

REACTIONS (6)
  - ARTHRALGIA [None]
  - BONE DISORDER [None]
  - BONE SWELLING [None]
  - BURNING SENSATION [None]
  - JOINT SWELLING [None]
  - PAIN [None]
